FAERS Safety Report 23246817 (Version 2)
Quarter: 2023Q4

REPORT INFORMATION
  Report Type: Spontaneous
  Country: DE (occurrence: DE)
  Receive Date: 20231130
  Receipt Date: 20231215
  Transmission Date: 20240109
  Serious: Yes (Other)
  Sender: FDA-Public Use
  Company Number: DE-INSMED, INC.-2023-04535-DE

PATIENT

DRUGS (1)
  1. ARIKAYCE [Suspect]
     Active Substance: AMIKACIN
     Indication: Product used for unknown indication
     Dosage: UNK
     Route: 055
     Dates: end: 2023

REACTIONS (3)
  - Mechanical ventilation [Not Recovered/Not Resolved]
  - General physical health deterioration [Not Recovered/Not Resolved]
  - Dyspnoea at rest [Not Recovered/Not Resolved]
